FAERS Safety Report 5036166-2 (Version None)
Quarter: 2006Q2

REPORT INFORMATION
  Report Type: 
  Country: None (occurrence: None)
  Receive Date: 20060531
  Receipt Date: 20060302
  Transmission Date: 20061013
  Serious: No
  Sender: FDA-Public Use
  Company Number: PHEH2006US02972

PATIENT
  Age: 67 Year
  Sex: Male
  Weight: 96.6 kg

DRUGS (7)
  1. EXJADE [Suspect]
     Dosage: 1500 MG QD ORAL
     Route: 048
     Dates: start: 20060126
  2. LASIX [Concomitant]
  3. LESCOL [Concomitant]
  4. LANTUS [Concomitant]
  5. ASPIRIN [Concomitant]
  6. FOLTX (CYANOCOBALAMIN, FOLIC ACID, PYRIDOXINE) [Concomitant]
  7. COZAAR [Concomitant]

REACTIONS (1)
  - OEDEMA [None]
